FAERS Safety Report 17251444 (Version 1)
Quarter: 2019Q4

REPORT INFORMATION
  Report Type: Spontaneous
  Country: US (occurrence: US)
  Receive Date: 20191216
  Receipt Date: 20191216
  Transmission Date: 20200122
  Serious: Yes (Hospitalization)
  Sender: FDA-Public Use
  Company Number: None

PATIENT
  Age: 20 Year
  Sex: Male

DRUGS (5)
  1. URSODIOL. [Concomitant]
     Active Substance: URSODIOL
  2. TRIAMCINOLON [Concomitant]
  3. MERCAPTOPUNNE [Concomitant]
  4. CIPROFLOXACN [Concomitant]
     Active Substance: CIPROFLOXACIN
  5. HUMIRA [Suspect]
     Active Substance: ADALIMUMAB
     Indication: COLITIS ULCERATIVE
     Dosage: ?          OTHER FREQUENCY:EVERY2WEEKS;?
     Route: 058
     Dates: start: 201909

REACTIONS (1)
  - Abdominal pain [None]

NARRATIVE: CASE EVENT DATE: 20191113
